FAERS Safety Report 17974340 (Version 3)
Quarter: 2020Q3

REPORT INFORMATION
  Report Type: Spontaneous
  Country: US (occurrence: US)
  Receive Date: 20200702
  Receipt Date: 20200805
  Transmission Date: 20201103
  Serious: No
  Sender: FDA-Public Use
  Company Number: US-TEVA-2020-US-1793597

PATIENT
  Sex: Female

DRUGS (2)
  1. ALBUTEROL. [Concomitant]
     Active Substance: ALBUTEROL
     Indication: RESPIRATION ABNORMAL
     Route: 065
  2. QVAR REDIHALER [Suspect]
     Active Substance: BECLOMETHASONE DIPROPIONATE
     Indication: RESPIRATION ABNORMAL
     Dosage: 2 PUFFS TWICE DAILY
     Route: 055

REACTIONS (4)
  - Fatigue [Unknown]
  - Product dose omission in error [Unknown]
  - Malaise [Unknown]
  - Dyspnoea [Unknown]
